FAERS Safety Report 19951148 (Version 1)
Quarter: 2021Q4

REPORT INFORMATION
  Report Type: Other
  Country: DE (occurrence: DE)
  Receive Date: 20211014
  Receipt Date: 20211014
  Transmission Date: 20220303
  Serious: Yes (Other)
  Sender: FDA-Public Use
  Company Number: DE-MACLEODS PHARMA UK LTD-MAC2021032934

PATIENT

DRUGS (6)
  1. VALSARTAN [Suspect]
     Active Substance: VALSARTAN
     Indication: Hypertension
     Dosage: 80 MILLIGRAM, QD ((1 {TRIMESTER}, 0. - 28.4. GESTATIONAL WEEK)
     Route: 048
  2. FOLIC ACID [Concomitant]
     Active Substance: FOLIC ACID
     Indication: Prophylaxis of neural tube defect
     Dosage: UNK ((1 {TRIMESTER} 6. - 29.2. GESTATIONAL WEEK)
     Route: 048
  3. INSULIN NOS [Concomitant]
     Active Substance: INSULIN NOS
     Indication: Type 1 diabetes mellitus
     Dosage: UNK, (1 TRIMESTER} 0. - 29.2. GESTATIONAL WEEK (LONG-TERM ACTING INSULINE)
     Route: 058
     Dates: start: 20201026, end: 20210519
  4. LEVOTHYROXINE SODIUM [Concomitant]
     Active Substance: LEVOTHYROXINE SODIUM
     Indication: Hypothyroidism
     Dosage: UNK, 1 {TRIMESTER}, TRIMESTER: LONG TERM EXPOSURE, 125 [?G/D ]/ SIX TIMES PER WEEK
     Route: 048
  5. NOVORAPID [Concomitant]
     Active Substance: INSULIN ASPART
     Indication: Type 1 diabetes mellitus
     Dosage: UNK, 1 {TRIMESTER}, 0. - 29.2. GESTATIONAL WEEK
     Route: 058
     Dates: start: 20201026, end: 20210519
  6. METHYLDOPA [Concomitant]
     Active Substance: METHYLDOPA
     Indication: Hypertension
     Dosage: UNK, 3 {TRIMESTER}, 29. - 29.2. GESTATIONAL WEEK
     Route: 048

REACTIONS (2)
  - Oligohydramnios [Not Recovered/Not Resolved]
  - Exposure during pregnancy [Unknown]
